FAERS Safety Report 4379047-X (Version None)
Quarter: 2004Q2

REPORT INFORMATION
  Report Type: 
  Country: None (occurrence: None)
  Receive Date: 20040601
  Receipt Date: 20040331
  Transmission Date: 20050107
  Serious: No
  Sender: FDA-Public Use
  Company Number: WAES 0404USA00101

PATIENT
  Sex: Female

DRUGS (7)
  1. ZETIA [Suspect]
     Indication: HYPERCHOLESTEROLAEMIA
     Dosage: 10 MG/DAILY/PO
     Route: 048
  2. ECOTRIN [Concomitant]
  3. EVISTA [Concomitant]
  4. HYDRODIURIL [Concomitant]
  5. SYNTHROID [Concomitant]
  6. TOPROL-XL [Concomitant]
  7. CLONIDINE HCL [Concomitant]

REACTIONS (1)
  - PAIN IN EXTREMITY [None]
